FAERS Safety Report 11831349 (Version 1)
Quarter: 2015Q4

REPORT INFORMATION
  Report Type: Spontaneous
  Country: US (occurrence: US)
  Receive Date: 20151214
  Receipt Date: 20151214
  Transmission Date: 20160305
  Serious: Yes (Hospitalization, Other)
  Sender: FDA-Public Use
  Company Number: US-ELI_LILLY_AND_COMPANY-US201512003559

PATIENT
  Sex: Female

DRUGS (4)
  1. LEVEMIR [Concomitant]
     Active Substance: INSULIN DETEMIR
     Indication: PRODUCT USED FOR UNKNOWN INDICATION
     Dosage: 15 U, QD
  2. HUMALOG [Suspect]
     Active Substance: INSULIN LISPRO
     Dosage: UNK, UNKNOWN
     Route: 065
  3. HUMALOG [Suspect]
     Active Substance: INSULIN LISPRO
     Indication: TYPE 2 DIABETES MELLITUS
     Dosage: 5 DF, QD
     Route: 065
     Dates: start: 2013
  4. METFORMIN [Concomitant]
     Active Substance: METFORMIN HYDROCHLORIDE
     Indication: PRODUCT USED FOR UNKNOWN INDICATION
     Dosage: 1000 U, BID
     Route: 065

REACTIONS (6)
  - Fall [Recovering/Resolving]
  - Tibia fracture [Recovering/Resolving]
  - Visual acuity reduced [Unknown]
  - Glaucoma [Unknown]
  - Retinopathy [Unknown]
  - Upper limb fracture [Recovering/Resolving]

NARRATIVE: CASE EVENT DATE: 2014
